FAERS Safety Report 16538343 (Version 1)
Quarter: 2019Q3

REPORT INFORMATION
  Report Type: Spontaneous
  Country: NL (occurrence: NL)
  Receive Date: 20190708
  Receipt Date: 20190708
  Transmission Date: 20191004
  Serious: Yes (Other)
  Sender: FDA-Public Use
  Company Number: NL-AUROBINDO-AUR-APL-2019-038254

PATIENT

DRUGS (3)
  1. PANTOPRAZOLE GASTRO-RESISTANT TABLET 40 MG [Suspect]
     Active Substance: PANTOPRAZOLE
     Indication: PRODUCT USED FOR UNKNOWN INDICATION
     Dosage: 40 MILLIGRAM, ONCE A DAY (1D1T)
     Route: 065
  2. CLOPIDOGREL [Suspect]
     Active Substance: CLOPIDOGREL BISULFATE
     Indication: TRANSIENT ISCHAEMIC ATTACK
     Dosage: 75 MILLIGRAM, ONCE A DAY (1X PER DAG 1 STUK)
     Route: 048
     Dates: start: 20170419, end: 2017
  3. SIMVASTATIN FILM-COATED TABLETS 40MG [Suspect]
     Active Substance: SIMVASTATIN
     Indication: PRODUCT USED FOR UNKNOWN INDICATION
     Dosage: 40 MILLIGRAM, ONCE A DAY (1D1T)
     Route: 065

REACTIONS (1)
  - Pemphigoid [Recovering/Resolving]
